FAERS Safety Report 8226965-8 (Version None)
Quarter: 2012Q1

REPORT INFORMATION
  Report Type: 
  Country: None (occurrence: None)
  Receive Date: 20120322
  Receipt Date: 20120314
  Transmission Date: 20120608
  Serious: Yes (Other)
  Sender: FDA-Public Use
  Company Number: JP-JNJFOC-20120308597

PATIENT
  Age: 84 Year

DRUGS (1)
  1. DORIPENEM MONOHYDRATE [Suspect]
     Indication: PNEUMONIA
     Route: 041
     Dates: start: 20120223, end: 20120304

REACTIONS (1)
  - LIVER DISORDER [None]
